FAERS Safety Report 16374866 (Version 1)
Quarter: 2019Q2

REPORT INFORMATION
  Report Type: Spontaneous
  Country: US (occurrence: US)
  Receive Date: 20190530
  Receipt Date: 20190530
  Transmission Date: 20190711
  Serious: No
  Sender: FDA-Public Use
  Company Number: US-AMGEN-USASP2019081293

PATIENT
  Age: 63 Year
  Sex: Female

DRUGS (1)
  1. PROLIA [Suspect]
     Active Substance: DENOSUMAB
     Indication: OSTEOPENIA
     Dosage: 60 MILLIGRAM, Q6MO
     Route: 065
     Dates: start: 201611, end: 2018

REACTIONS (14)
  - Lip exfoliation [Unknown]
  - Gingival disorder [Unknown]
  - Dizziness [Unknown]
  - Feeling abnormal [Unknown]
  - Mouth ulceration [Unknown]
  - Mastication disorder [Unknown]
  - Speech disorder [Unknown]
  - Dysphagia [Unknown]
  - Taste disorder [Unknown]
  - Oral discomfort [Unknown]
  - Tongue erythema [Unknown]
  - Salivary hypersecretion [Unknown]
  - Off label use [Unknown]
  - Skin disorder [Unknown]

NARRATIVE: CASE EVENT DATE: 200611
